FAERS Safety Report 7902196-3 (Version None)
Quarter: 2011Q4

REPORT INFORMATION
  Report Type: 
  Country: None (occurrence: None)
  Receive Date: 20111108
  Receipt Date: 20111103
  Transmission Date: 20120403
  Serious: Yes (Other)
  Sender: FDA-Public Use
  Company Number: US-BAYER-2011-077748

PATIENT
  Age: 31 Year
  Sex: Female
  Weight: 59.41 kg

DRUGS (3)
  1. MIRENA [Suspect]
     Indication: CONTRACEPTION
     Dosage: 20 MCG/24HR, CONT
     Route: 015
     Dates: start: 20100623, end: 20110805
  2. MIRENA [Suspect]
     Dosage: UNK
     Dates: start: 20070101
  3. MIRENA [Suspect]
     Dosage: UNK
     Dates: start: 20030101

REACTIONS (3)
  - PELVIC PAIN [None]
  - DEVICE EXPULSION [None]
  - VAGINAL HAEMORRHAGE [None]
